FAERS Safety Report 5140225-3 (Version None)
Quarter: 2006Q4

REPORT INFORMATION
  Report Type: 
  Country: None (occurrence: None)
  Receive Date: 20061031
  Receipt Date: 20061019
  Transmission Date: 20070319
  Serious: Yes (Hospitalization)
  Sender: FDA-Public Use
  Company Number: US-JNJFOC-20061004887

PATIENT
  Sex: Female
  Weight: 101.61 kg

DRUGS (7)
  1. DURAGESIC-100 [Suspect]
     Indication: PAIN
     Route: 062
  2. ASPIRIN [Concomitant]
     Indication: ARTHRITIS
     Route: 048
  3. BUMEX [Concomitant]
     Indication: FLUID RETENTION
     Route: 048
  4. LYRICA [Concomitant]
     Indication: PAIN
     Route: 048
  5. PROCARDIA [Concomitant]
     Indication: HYPERTENSION
     Route: 048
  6. CLONIDINE [Concomitant]
     Indication: BLOOD PRESSURE
     Route: 048
  7. NEXIUM [Concomitant]
     Indication: GASTROOESOPHAGEAL REFLUX DISEASE
     Route: 048

REACTIONS (7)
  - ASTHENIA [None]
  - FALL [None]
  - FREQUENT BOWEL MOVEMENTS [None]
  - GASTRITIS [None]
  - NAUSEA [None]
  - PAIN [None]
  - VOMITING [None]
